FAERS Safety Report 4870166-8 (Version None)
Quarter: 2005Q4

REPORT INFORMATION
  Report Type: 
  Country: None (occurrence: None)
  Receive Date: 20051229
  Receipt Date: 20051229
  Transmission Date: 20060501
  Serious: Yes (Hospitalization)
  Sender: FDA-Public Use
  Company Number: None

PATIENT
  Age: 85 Year
  Sex: Male
  Weight: 72.5755 kg

DRUGS (1)
  1. METOPROLOL SUCCINATE EXTENDED RELEASE [Suspect]
     Indication: CARDIAC FAILURE CONGESTIVE
     Dosage: 25MG  DAILY  PO
     Route: 048
     Dates: start: 20050808, end: 20051019

REACTIONS (1)
  - DYSPNOEA [None]
